FAERS Safety Report 10655646 (Version 2)
Quarter: 2015Q1

REPORT INFORMATION
  Report Type: Spontaneous
  Country: US (occurrence: US)
  Receive Date: 20141216
  Receipt Date: 20150211
  Transmission Date: 20150720
  Serious: Yes (Other)
  Sender: FDA-Public Use
  Company Number: US-GLAXOSMITHKLINE-US2014GSK036712

PATIENT
  Sex: Male

DRUGS (3)
  1. CLONOPIN [Concomitant]
     Active Substance: CLONAZEPAM
     Dosage: UNK, U
     Dates: start: 2004
  2. ZYVOX [Interacting]
     Active Substance: LINEZOLID
     Indication: OSTEOMYELITIS
     Dosage: 50 MG, BID
     Dates: start: 201410
  3. WELLBUTRIN [Suspect]
     Active Substance: BUPROPION HYDROCHLORIDE
     Indication: DEPRESSION
     Dosage: 150 MG, QD
     Dates: start: 1999, end: 2014

REACTIONS (3)
  - Drug interaction [Unknown]
  - Serotonin syndrome [Recovering/Resolving]
  - Osteomyelitis [Unknown]
